FAERS Safety Report 18090208 (Version 2)
Quarter: 2020Q3

REPORT INFORMATION
  Report Type: Spontaneous
  Country: DE (occurrence: DE)
  Receive Date: 20200730
  Receipt Date: 20200803
  Transmission Date: 20201103
  Serious: Yes (Hospitalization, Other)
  Sender: FDA-Public Use
  Company Number: DE-AUROBINDO-AUR-APL-2020-036872

PATIENT
  Age: 69 Year
  Sex: Male
  Weight: 95 kg

DRUGS (9)
  1. CLOPIDOGREL [Suspect]
     Active Substance: CLOPIDOGREL BISULFATE
     Indication: PLATELET DISORDER
     Dosage: UNK (FOR THROMBOCYTE FUNCTION INHIBITION)
     Route: 065
  2. RIVAROXABAN [Suspect]
     Active Substance: RIVAROXABAN
     Indication: ATRIAL FIBRILLATION
     Dosage: 20 MILLIGRAM, ONCE A DAY
     Route: 048
     Dates: end: 20200611
  3. HYDROCHLOROTHIAZIDE. [Concomitant]
     Active Substance: HYDROCHLOROTHIAZIDE
     Indication: HYPERTENSION
     Dosage: 25 MILLIGRAM, ONCE A DAY (1?0?0)
     Route: 048
  4. RIVAROXABAN [Suspect]
     Active Substance: RIVAROXABAN
     Dosage: 20 MILLIGRAM, ONCE A DAY
     Route: 048
     Dates: start: 2020
  5. XARELTO [Suspect]
     Active Substance: RIVAROXABAN
     Dosage: 20 MILLIGRAM, ONCE A DAY (1?0?0)
     Route: 048
     Dates: start: 2020
  6. BISOPROLOL [Concomitant]
     Active Substance: BISOPROLOL
     Indication: HYPERTENSION
     Dosage: 10 MILLIGRAM, ONCE A DAY (1?0?0)
     Route: 048
  7. XARELTO [Suspect]
     Active Substance: RIVAROXABAN
     Indication: ATRIAL FIBRILLATION
     Dosage: 20 MILLIGRAM, ONCE A DAY (1?0?0)
     Route: 048
  8. CANDESARTAN. [Concomitant]
     Active Substance: CANDESARTAN
     Indication: HYPERTENSION
     Dosage: 16 MILLIGRAM, ONCE A DAY (1?0?0)
     Route: 048
  9. ACETYLSALICYLIC ACID [Suspect]
     Active Substance: ASPIRIN
     Indication: PLATELET DISORDER
     Dosage: UNK (FOR THROMBOCYTE FUNCTION INHIBITION)
     Route: 065

REACTIONS (13)
  - Basilar artery thrombosis [Recovering/Resolving]
  - Diplopia [Unknown]
  - Facial paresis [Not Recovered/Not Resolved]
  - Vertigo [Unknown]
  - Hemiparesis [Recovering/Resolving]
  - Hemiataxia [Recovering/Resolving]
  - Ophthalmoplegia [Recovering/Resolving]
  - Dyskinesia [Recovering/Resolving]
  - Paresis cranial nerve [Recovering/Resolving]
  - Dysarthria [Recovering/Resolving]
  - Macular ischaemia [Recovering/Resolving]
  - Brain stem infarction [Recovering/Resolving]
  - Ataxia [Not Recovered/Not Resolved]

NARRATIVE: CASE EVENT DATE: 20180612
